FAERS Safety Report 6545324-7 (Version None)
Quarter: 2010Q1

REPORT INFORMATION
  Report Type: 
  Country: None (occurrence: None)
  Receive Date: 20100121
  Receipt Date: 20100113
  Transmission Date: 20100710
  Serious: Yes (Hospitalization)
  Sender: FDA-Public Use
  Company Number: JP-MERCK-1001USA01759

PATIENT
  Age: 80 Year
  Sex: Female

DRUGS (5)
  1. JANUVIA [Suspect]
     Indication: TYPE 2 DIABETES MELLITUS
     Route: 048
     Dates: start: 20091227, end: 20091229
  2. JANUVIA [Suspect]
     Route: 048
     Dates: start: 20100101
  3. AMARYL [Suspect]
     Indication: BLOOD GLUCOSE INCREASED
     Route: 048
  4. AMARYL [Suspect]
     Route: 048
     Dates: start: 20100112
  5. GLYCORAN [Suspect]
     Indication: BLOOD GLUCOSE INCREASED
     Route: 048
     Dates: end: 20100101

REACTIONS (1)
  - HYPOGLYCAEMIA [None]
